FAERS Safety Report 4609094-1 (Version None)
Quarter: 2005Q2

REPORT INFORMATION
  Report Type: 
  Country: None (occurrence: None)
  Receive Date: 20050301
  Receipt Date: 20040827
  Transmission Date: 20051028
  Serious: Yes (Disabling)
  Sender: FDA-Public Use
  Company Number: 20040800385

PATIENT
  Age: 67 Year
  Sex: Female

DRUGS (1)
  1. REGLAN [Suspect]
     Indication: GASTROOESOPHAGEAL REFLUX DISEASE
     Dates: start: 20000810, end: 20011014

REACTIONS (1)
  - TARDIVE DYSKINESIA [None]
